FAERS Safety Report 6495319-7 (Version None)
Quarter: 2009Q4

REPORT INFORMATION
  Report Type: 
  Country: None (occurrence: None)
  Receive Date: 20091214
  Receipt Date: 20090528
  Transmission Date: 20100525
  Serious: No
  Sender: FDA-Public Use
  Company Number: US-BRISTOL-MYERS SQUIBB COMPANY-14643308

PATIENT
  Sex: Female

DRUGS (2)
  1. ABILIFY [Suspect]
     Indication: BIPOLAR II DISORDER
     Dosage: TABLET SPLITTED TO 4 TO TAKE A DOSE OF 0.5MG
  2. ABILIFY [Suspect]
     Indication: ANXIETY
     Dosage: TABLET SPLITTED TO 4 TO TAKE A DOSE OF 0.5MG

REACTIONS (4)
  - ANXIETY [None]
  - INSOMNIA [None]
  - PARAESTHESIA [None]
  - TACHYCARDIA [None]
